FAERS Safety Report 5418457-6 (Version None)
Quarter: 2007Q3

REPORT INFORMATION
  Report Type: 
  Country: None (occurrence: None)
  Receive Date: 20070817
  Receipt Date: 20070813
  Transmission Date: 20080115
  Serious: Yes (Death, Hospitalization)
  Sender: FDA-Public Use
  Company Number: US-ROXANE LABORATORIES, INC-2007-BP-19033RO

PATIENT
  Age: 36 Year
  Sex: Male

DRUGS (9)
  1. PREDNISONE TAB [Suspect]
     Indication: IMMUNE RECONSTITUTION SYNDROME
  2. CLARITHROMYCIN [Suspect]
     Indication: MYCOBACTERIUM AVIUM COMPLEX INFECTION
  3. ETHAMBUTOL HYDROCHLORIDE [Suspect]
     Indication: MYCOBACTERIUM AVIUM COMPLEX INFECTION
  4. MYCOBUTIN [Suspect]
     Indication: MYCOBACTERIUM AVIUM COMPLEX INFECTION
  5. EPIVIR [Concomitant]
     Indication: RETROVIRAL INFECTION
  6. VIREAD [Concomitant]
     Indication: RETROVIRAL INFECTION
  7. NORVIR [Concomitant]
     Indication: RETROVIRAL INFECTION
  8. REYATAZ [Concomitant]
     Indication: RETROVIRAL INFECTION
  9. DOXIL [Concomitant]
     Indication: RETROVIRAL INFECTION

REACTIONS (5)
  - ACUTE RESPIRATORY DISTRESS SYNDROME [None]
  - CHEST X-RAY ABNORMAL [None]
  - DRUG EFFECT DECREASED [None]
  - DYSPNOEA [None]
  - RESPIRATORY FAILURE [None]
